FAERS Safety Report 19794477 (Version 1)
Quarter: 2021Q3

REPORT INFORMATION
  Report Type: Spontaneous
  Country: TR (occurrence: TR)
  Receive Date: 20210907
  Receipt Date: 20210907
  Transmission Date: 20211014
  Serious: No
  Sender: FDA-Public Use
  Company Number: TR-LUPIN PHARMACEUTICALS INC.-2021-16511

PATIENT
  Age: 64 Year
  Sex: Male

DRUGS (4)
  1. CYCLOPHOSPHAMIDE. [Suspect]
     Active Substance: CYCLOPHOSPHAMIDE
     Indication: BLASTIC PLASMACYTOID DENDRITIC CELL NEOPLASIA
     Dosage: UNK, SIX CYCLES OF CHOP REGIMEN
     Route: 065
  2. DOXORUBICIN [Suspect]
     Active Substance: DOXORUBICIN
     Indication: BLASTIC PLASMACYTOID DENDRITIC CELL NEOPLASIA
     Dosage: UNK, SIX CYCLES OF CHOP REGIMEN
     Route: 065
  3. VINCRISTINE [Suspect]
     Active Substance: VINCRISTINE
     Indication: BLASTIC PLASMACYTOID DENDRITIC CELL NEOPLASIA
     Dosage: UNK, SIX CYCLES OF CHOP REGIMEN
     Route: 065
  4. METHYLPREDNISOLONE. [Suspect]
     Active Substance: METHYLPREDNISOLONE
     Indication: BLASTIC PLASMACYTOID DENDRITIC CELL NEOPLASIA
     Dosage: UNK, SIX CYCLES OF CHOP REGIMEN
     Route: 065

REACTIONS (2)
  - Drug ineffective for unapproved indication [Unknown]
  - Off label use [Unknown]
